FAERS Safety Report 10818542 (Version 1)
Quarter: 2015Q1

REPORT INFORMATION
  Report Type: Report from Study
  Country: US (occurrence: US)
  Receive Date: 20150218
  Receipt Date: 20150218
  Transmission Date: 20150721
  Serious: Yes (Hospitalization)
  Sender: FDA-Public Use
  Company Number: US-ABBVIE-14K-163-1291765-00

PATIENT
  Sex: Male

DRUGS (7)
  1. BLOOD PRESSURE PILL [Concomitant]
     Indication: BLOOD PRESSURE
  2. HUMIRA [Suspect]
     Active Substance: ADALIMUMAB
     Dosage: DAY 1, LOADING DOSE
     Route: 058
     Dates: start: 20140829, end: 20140829
  3. HUMIRA [Suspect]
     Active Substance: ADALIMUMAB
     Indication: CROHN^S DISEASE
     Dosage: LOADING DOSE
     Route: 058
     Dates: start: 2011, end: 2011
  4. HUMIRA [Suspect]
     Active Substance: ADALIMUMAB
     Route: 058
     Dates: start: 20140926
  5. EFFEXOR [Concomitant]
     Active Substance: VENLAFAXINE HYDROCHLORIDE
     Indication: DEPRESSION
  6. PROSTATE PILL [Concomitant]
     Indication: PRODUCT USED FOR UNKNOWN INDICATION
  7. HUMIRA [Suspect]
     Active Substance: ADALIMUMAB
     Dosage: DAY 15
     Route: 058
     Dates: start: 20140912, end: 20140912

REACTIONS (6)
  - Incision site erythema [Unknown]
  - Drug ineffective [Recovering/Resolving]
  - Post procedural fistula [Recovering/Resolving]
  - Incision site pain [Unknown]
  - Gastritis [Recovered/Resolved]
  - Stoma site abscess [Recovering/Resolving]

NARRATIVE: CASE EVENT DATE: 2011
